FAERS Safety Report 4372180-8 (Version None)
Quarter: 2004Q2

REPORT INFORMATION
  Report Type: 
  Country: None (occurrence: None)
  Receive Date: 20040607
  Receipt Date: 20040518
  Transmission Date: 20050107
  Serious: Yes (Other)
  Sender: FDA-Public Use
  Company Number: BE-GLAXOSMITHKLINE-B0333237A

PATIENT

DRUGS (1)
  1. CLAMOXYL [Suspect]
     Route: 030

REACTIONS (3)
  - MEDICATION ERROR [None]
  - PARALYSIS [None]
  - SCIATICA [None]
